FAERS Safety Report 7017477-8 (Version None)
Quarter: 2010Q3

REPORT INFORMATION
  Report Type: 
  Country: None (occurrence: None)
  Receive Date: 20100928
  Receipt Date: 20100916
  Transmission Date: 20110219
  Serious: Yes (Other)
  Sender: FDA-Public Use
  Company Number: FR-PFIZER INC-2010072610

PATIENT
  Age: 33 Year
  Sex: Female
  Weight: 54 kg

DRUGS (3)
  1. SALAZOPYRIN [Suspect]
     Indication: COLITIS ULCERATIVE
     Dosage: 2 DF, 2X/DAY
     Dates: start: 20100527, end: 20100605
  2. SALAZOPYRIN [Suspect]
     Indication: MUSCULOSKELETAL PAIN
  3. LEVOTHYROXINE SODIUM [Concomitant]
     Indication: HYPOTHYROIDISM
     Dosage: 150 UNK, 1X/DAY
     Route: 048

REACTIONS (6)
  - HYPERSENSITIVITY [None]
  - LYMPHADENOPATHY [None]
  - PHOTOSENSITIVITY REACTION [None]
  - PYREXIA [None]
  - RASH [None]
  - THROMBOCYTOPENIA [None]
